FAERS Safety Report 4740558-6 (Version None)
Quarter: 2005Q3

REPORT INFORMATION
  Report Type: 
  Country: None (occurrence: None)
  Receive Date: 20050801
  Receipt Date: 20041101
  Transmission Date: 20060218
  Serious: Yes (Hospitalization)
  Sender: FDA-Public Use
  Company Number: 209180

PATIENT
  Age: 47 Year
  Sex: Female

DRUGS (19)
  1. RITUXAN [Suspect]
     Indication: SYSTEMIC LUPUS ERYTHEMATOSUS
     Dosage: 500 MG, UNK, INTRAVENOUS
     Route: 042
     Dates: start: 20040301, end: 20040301
  2. RITUXAN [Suspect]
     Indication: SYSTEMIC LUPUS ERYTHEMATOSUS
     Dosage: 500 MG, UNK, INTRAVENOUS
     Route: 042
     Dates: start: 20040801, end: 20040801
  3. RITUXAN [Suspect]
     Indication: SYSTEMIC LUPUS ERYTHEMATOSUS
     Dosage: 500 MG, UNK, INTRAVENOUS
     Route: 042
     Dates: start: 20040824, end: 20040824
  4. RITUXAN [Suspect]
     Indication: SYSTEMIC LUPUS ERYTHEMATOSUS
     Dosage: 500 MG, UNK, INTRAVENOUS
     Route: 042
     Dates: start: 20040903, end: 20040903
  5. TOPAMAX [Concomitant]
  6. OXYCONTIN [Concomitant]
  7. METOPROLOL TARTRATE [Concomitant]
  8. NEURONTIN (CITICOLINE) [Concomitant]
  9. PREVACID [Concomitant]
  10. SYNTHROID [Concomitant]
  11. PREDNISONE [Concomitant]
  12. COUMADIN [Concomitant]
  13. ESTRADIOL [Concomitant]
  14. DESIPRAMINE (DESIPRAMINE HYDROCHLORIDE) [Concomitant]
  15. ALLEGRA [Concomitant]
  16. NULEV (HYOSCYAMINE SULFATE) [Concomitant]
  17. ALBUTEROL INHALER (ALBUTEROL, ALBUTEROL SULFATE) [Concomitant]
  18. ZOFRAN [Concomitant]
  19. FUROSEMIDE [Concomitant]

REACTIONS (1)
  - LEUKOPENIA [None]
